FAERS Safety Report 23767042 (Version 1)
Quarter: 2024Q2

REPORT INFORMATION
  Report Type: Report from Study
  Country: US (occurrence: US)
  Receive Date: 20240422
  Receipt Date: 20240422
  Transmission Date: 20240716
  Serious: Yes (Hospitalization)
  Sender: FDA-Public Use
  Company Number: US-RECORDATI-2024002712

PATIENT

DRUGS (1)
  1. SIGNIFOR LAR [Suspect]
     Active Substance: PASIREOTIDE PAMOATE
     Indication: Product used for unknown indication
     Dosage: 40 MILLIGRAM
     Dates: start: 202312, end: 202402

REACTIONS (5)
  - Muscle atrophy [Recovering/Resolving]
  - Fall [Recovering/Resolving]
  - Hypertension [Recovering/Resolving]
  - Hyperglycaemia [Recovering/Resolving]
  - Bradycardia [Recovering/Resolving]
